FAERS Safety Report 7229125-2 (Version None)
Quarter: 2011Q1

REPORT INFORMATION
  Report Type: 
  Country: None (occurrence: None)
  Receive Date: 20110117
  Receipt Date: 20110110
  Transmission Date: 20110831
  Serious: Yes (Hospitalization)
  Sender: FDA-Public Use
  Company Number: IT-MPIJNJ-2010-06398

PATIENT

DRUGS (5)
  1. DELTACORTENE [Concomitant]
     Dosage: 100 MG, UNK
     Dates: start: 20101213, end: 20101216
  2. VELCADE [Suspect]
     Indication: MULTIPLE MYELOMA
     Dosage: 2 MG, CYCLIC
     Route: 042
     Dates: start: 20101213, end: 20101213
  3. ACYCLOVIR [Concomitant]
     Dosage: 1200 MG, UNK
     Dates: start: 20101220, end: 20101227
  4. ALKERAN [Suspect]
     Dosage: 14 MG, UNK
     Route: 048
     Dates: start: 20101213, end: 20101216
  5. GRANULOKINE [Concomitant]
     Dosage: UNK
     Dates: start: 20101224, end: 20101226

REACTIONS (2)
  - PANCYTOPENIA [None]
  - PETECHIAE [None]
